FAERS Safety Report 8541614-7 (Version None)
Quarter: 2012Q3

REPORT INFORMATION
  Report Type: 
  Country: None (occurrence: None)
  Receive Date: 20120726
  Receipt Date: 20120717
  Transmission Date: 20120928
  Serious: Yes (Hospitalization)
  Sender: FDA-Public Use
  Company Number: FR-ABBOTT-12P-163-0957333-00

PATIENT
  Age: 60 Year
  Sex: Male

DRUGS (1)
  1. VALPROIC ACID [Suspect]
     Indication: EPILEPSY

REACTIONS (2)
  - THERAPY REGIMEN CHANGED [None]
  - CONVULSION [None]
